FAERS Safety Report 18946497 (Version 1)
Quarter: 2021Q1

REPORT INFORMATION
  Report Type: Other
  Country: DE (occurrence: DE)
  Receive Date: 20210226
  Receipt Date: 20210226
  Transmission Date: 20210420
  Serious: Yes (Other)
  Sender: FDA-Public Use
  Company Number: DE-ROCHE-2776792

PATIENT
  Age: 33 Year
  Sex: Female

DRUGS (10)
  1. PREGABALIN. [Concomitant]
     Active Substance: PREGABALIN
     Indication: MULTIPLE SCLEROSIS
     Route: 048
     Dates: start: 20190515
  2. DEKRISTOL [Concomitant]
     Active Substance: CHOLECALCIFEROL
     Indication: PROPHYLAXIS
     Route: 048
     Dates: start: 201812
  3. NATALIZUMAB [Concomitant]
     Active Substance: NATALIZUMAB
     Dates: start: 201404, end: 201705
  4. AVONEX [Concomitant]
     Active Substance: INTERFERON BETA-1A
     Dates: start: 2010, end: 2011
  5. FINGOLIMOD. [Concomitant]
     Active Substance: FINGOLIMOD
     Dates: start: 201301, end: 201402
  6. PREGABALIN. [Concomitant]
     Active Substance: PREGABALIN
     Route: 048
     Dates: start: 201812, end: 20190514
  7. FINGOLIMOD. [Concomitant]
     Active Substance: FINGOLIMOD
     Dates: start: 201707, end: 201809
  8. GLATIRAMER ACETATE. [Concomitant]
     Active Substance: GLATIRAMER ACETATE
     Dates: start: 2011, end: 201212
  9. OCRELIZUMAB. [Suspect]
     Active Substance: OCRELIZUMAB
     Indication: RELAPSING MULTIPLE SCLEROSIS
     Route: 042
     Dates: start: 20190820, end: 20200218
  10. OCRELIZUMAB. [Suspect]
     Active Substance: OCRELIZUMAB
     Route: 042
     Dates: start: 20190207, end: 20190221

REACTIONS (1)
  - Mastitis [Not Recovered/Not Resolved]

NARRATIVE: CASE EVENT DATE: 20210217
